FAERS Safety Report 8538691-6 (Version None)
Quarter: 2012Q3

REPORT INFORMATION
  Report Type: 
  Country: None (occurrence: None)
  Receive Date: 20120726
  Receipt Date: 20120716
  Transmission Date: 20120928
  Serious: Yes (Hospitalization, Other)
  Sender: FDA-Public Use
  Company Number: US-BAYER-2012-071182

PATIENT
  Age: 46 Year
  Sex: Female
  Weight: 104.31 kg

DRUGS (3)
  1. NSAID'S [Concomitant]
  2. YASMIN [Suspect]
     Indication: CONTRACEPTION
     Dosage: UNK
     Dates: start: 20040101, end: 20061101
  3. ZOLPIDEM [Concomitant]
     Indication: INSOMNIA
     Dosage: 10 MG, HS AS NEEDED
     Route: 048

REACTIONS (14)
  - NERVOUSNESS [None]
  - PAIN [None]
  - EMOTIONAL DISTRESS [None]
  - DYSPNOEA [None]
  - GENERAL PHYSICAL HEALTH DETERIORATION [None]
  - SKIN DISCOLOURATION [None]
  - PULMONARY EMBOLISM [None]
  - DEEP VEIN THROMBOSIS [None]
  - CHEST PAIN [None]
  - SWELLING [None]
  - ANXIETY [None]
  - PAIN IN EXTREMITY [None]
  - INJURY [None]
  - HYPOAESTHESIA [None]
